FAERS Safety Report 6355664-2 (Version None)
Quarter: 2009Q3

REPORT INFORMATION
  Report Type: 
  Country: None (occurrence: None)
  Receive Date: 20090910
  Receipt Date: 20090827
  Transmission Date: 20100115
  Serious: Yes (Other)
  Sender: FDA-Public Use
  Company Number: 2009AP003032

PATIENT
  Age: 60 Year
  Sex: Female

DRUGS (3)
  1. GABAPENTIN [Suspect]
     Dosage: 300 MG; PO; 300 MG; PO; BID
     Route: 048
     Dates: start: 20090312
  2. ESCITALOPRAM OXALATE (ESCITALOPRAM OXALATE) [Concomitant]
  3. LORAZEPAM [Concomitant]

REACTIONS (5)
  - DECREASED APPETITE [None]
  - HYPOPHAGIA [None]
  - MOTION SICKNESS [None]
  - NAUSEA [None]
  - WEIGHT DECREASED [None]
